FAERS Safety Report 15091221 (Version 1)
Quarter: 2018Q2

REPORT INFORMATION
  Report Type: Spontaneous
  Country: US (occurrence: US)
  Receive Date: 20180629
  Receipt Date: 20180629
  Transmission Date: 20180711
  Serious: No
  Sender: FDA-Public Use
  Company Number: US-AMGEN-USASP2015064653

PATIENT
  Age: 78 Year
  Sex: Female

DRUGS (1)
  1. PROLIA [Suspect]
     Active Substance: DENOSUMAB
     Indication: PRODUCT USED FOR UNKNOWN INDICATION
     Dosage: UNK
     Route: 065
     Dates: start: 20150624

REACTIONS (7)
  - Pyrexia [Recovering/Resolving]
  - Immune system disorder [Unknown]
  - Feeling abnormal [Unknown]
  - Myalgia [Unknown]
  - Pain [Unknown]
  - Viral infection [Unknown]
  - Hypersomnia [Unknown]
